FAERS Safety Report 7277234-4 (Version None)
Quarter: 2011Q1

REPORT INFORMATION
  Report Type: 
  Country: None (occurrence: None)
  Receive Date: 20110202
  Receipt Date: 20110202
  Transmission Date: 20110831
  Serious: Yes (Life-Threatening)
  Sender: FDA-Public Use
  Company Number: None

PATIENT
  Age: 57 Year
  Sex: Female
  Weight: 115 kg

DRUGS (9)
  1. METOPROLOL [Concomitant]
  2. FUROSEMIDE [Suspect]
     Indication: OEDEMA
     Dosage: 40 MG PO ONE TIME DOSE
     Route: 048
  3. PANTOPRAZOLE [Concomitant]
  4. TPN [Concomitant]
  5. INSULIN [Concomitant]
  6. VANCOMYCIN [Concomitant]
  7. ENOXAPARIN SODIUM [Concomitant]
  8. LEVOFLOXACIN [Concomitant]
  9. METHYLPREDNISOLONE [Concomitant]

REACTIONS (2)
  - GENERAL PHYSICAL HEALTH DETERIORATION [None]
  - STRIDOR [None]
